FAERS Safety Report 4652423-3 (Version None)
Quarter: 2005Q2

REPORT INFORMATION
  Report Type: 
  Country: None (occurrence: None)
  Receive Date: 20050504
  Receipt Date: 20050422
  Transmission Date: 20051028
  Serious: Yes (Disabling)
  Sender: FDA-Public Use
  Company Number: US-MERCK-0504USA04133

PATIENT
  Age: 59 Year
  Sex: Male

DRUGS (6)
  1. VYTORIN [Suspect]
     Indication: BLOOD CHOLESTEROL INCREASED
     Route: 048
     Dates: start: 20050101, end: 20050301
  2. VYTORIN [Suspect]
     Route: 048
     Dates: start: 20050420
  3. INSULIN [Concomitant]
     Route: 065
  4. AVANDAMET [Concomitant]
     Route: 065
  5. NORVASC [Concomitant]
     Route: 065
  6. BENICAR [Concomitant]
     Route: 065

REACTIONS (4)
  - ASTHENIA [None]
  - COLD SWEAT [None]
  - GASTRIC INFECTION [None]
  - INSOMNIA [None]
